FAERS Safety Report 6375490-8 (Version None)
Quarter: 2009Q3

REPORT INFORMATION
  Report Type: 
  Country: None (occurrence: None)
  Receive Date: 20090924
  Receipt Date: 20090618
  Transmission Date: 20100115
  Serious: No
  Sender: FDA-Public Use
  Company Number: US-BAYER-200914001BCC

PATIENT
  Age: 3 Year
  Sex: Female

DRUGS (2)
  1. ALEVE (CAPLET) [Suspect]
     Indication: ACCIDENTAL DRUG INTAKE BY CHILD
     Route: 048
     Dates: start: 20090617, end: 20090617
  2. DAILY MULTIVITAMIN [Concomitant]
     Route: 065

REACTIONS (1)
  - NO ADVERSE EVENT [None]
